FAERS Safety Report 8861135 (Version 1)
Quarter: 2012Q4

REPORT INFORMATION
  Report Type: 
  Country: US (occurrence: US)
  Receive Date: 20121025
  Receipt Date: 20121025
  Transmission Date: 20130627
  Serious: No
  Sender: FDA-Public Use
  Company Number: US-AMGEN-USASP2012012526

PATIENT
  Age: 58 Year
  Sex: Female
  Weight: 68.03 kg

DRUGS (6)
  1. ENBREL [Suspect]
     Indication: PRODUCT USED FOR UNKNOWN INDICATION
     Dosage: 50 mg, qwk
     Route: 058
  2. SANCTURA [Concomitant]
     Dosage: 60 mg, UNK
  3. ADVAIR [Concomitant]
  4. VALTREX [Concomitant]
     Dosage: 500 mg, UNK
  5. SPIRULINA                          /01514001/ [Concomitant]
     Dosage: 500 mg, UNK
  6. BIOTIN [Concomitant]
     Dosage: UNK

REACTIONS (1)
  - Lung infection [Unknown]
